FAERS Safety Report 8785626 (Version 1)
Quarter: 2012Q4

REPORT INFORMATION
  Report Type: 
  Country: AU (occurrence: AU)
  Receive Date: 20120914
  Receipt Date: 20120914
  Transmission Date: 20130627
  Serious: Yes (Death)
  Sender: FDA-Public Use
  Company Number: AU-SANOFI-AVENTIS-2012SA065340

PATIENT
  Age: 73 Year
  Sex: Female

DRUGS (11)
  1. CLEXANE [Suspect]
     Indication: DRUG USE FOR UNKNOWN INDICATION
     Route: 065
     Dates: start: 20120709, end: 20120718
  2. CLOPIDOGREL BISULFATE [Suspect]
     Indication: DRUG USE FOR UNKNOWN INDICATION
     Dosage: dose- 75,units-unspecified
     Route: 065
     Dates: start: 20120711, end: 20120718
  3. ASPIRIN [Suspect]
     Indication: DRUG USE FOR UNKNOWN INDICATION
     Route: 065
     Dates: end: 20120718
  4. AMLODIPINE [Concomitant]
  5. CALCIUM/MAGNESIUM/VITAMIN D NOS [Concomitant]
  6. CLONIDINE HYDROCHLORIDE [Concomitant]
  7. EZETROL [Concomitant]
  8. FENOFIBRATE [Concomitant]
  9. HYDROCORTISONE [Concomitant]
  10. HYDROCHLOROTHIAZIDE/IRBESARTAN [Concomitant]
  11. LIOTHYRONINE SODIUM [Concomitant]

REACTIONS (4)
  - Cardiac arrest [Fatal]
  - Ventricular fibrillation [Fatal]
  - Arthralgia [Fatal]
  - Retroperitoneal haemorrhage [Fatal]
